FAERS Safety Report 18477883 (Version 1)
Quarter: 2020Q4

REPORT INFORMATION
  Report Type: Spontaneous
  Country: CA (occurrence: CA)
  Receive Date: 20201108
  Receipt Date: 20201108
  Transmission Date: 20210114
  Serious: Yes (Hospitalization, Other)
  Sender: FDA-Public Use
  Company Number: CA-ASTRAZENECA-2020SF42063

PATIENT
  Age: 71 Year
  Sex: Female
  Weight: 66.9 kg

DRUGS (16)
  1. RADIOTHERAPY [Concomitant]
     Active Substance: RADIATION THERAPY
     Dosage: AS A P.R.N. BASIS
  2. ELIQUIS [Concomitant]
     Active Substance: APIXABAN
  3. LORAZEPAM. [Concomitant]
     Active Substance: LORAZEPAM
  4. ZOPICLONE [Concomitant]
     Active Substance: ZOPICLONE
     Dosage: 7.5 MG HALF A TABLET AT BEDTIME P.R.N.
  5. VITAMIN D3 [Concomitant]
     Active Substance: CHOLECALCIFEROL
  6. MULTIVITAMIN [Concomitant]
     Active Substance: VITAMINS
  7. METOPROLOL. [Concomitant]
     Active Substance: METOPROLOL
  8. TAGRISSO [Suspect]
     Active Substance: OSIMERTINIB
     Indication: LUNG CANCER METASTATIC
     Route: 048
     Dates: start: 20200101, end: 20200324
  9. MAGNESIUM [Concomitant]
     Active Substance: MAGNESIUM
  10. LISINOPRIL. [Concomitant]
     Active Substance: LISINOPRIL
  11. IRESSA [Suspect]
     Active Substance: GEFITINIB
     Route: 048
     Dates: start: 20200422
  12. ATIVAN [Concomitant]
     Active Substance: LORAZEPAM
  13. LASIX [Concomitant]
     Active Substance: FUROSEMIDE
  14. LASIX [Concomitant]
     Active Substance: FUROSEMIDE
  15. LUTEIN [Concomitant]
     Active Substance: LUTEIN
  16. FISH OIL [Concomitant]
     Active Substance: FISH OIL

REACTIONS (22)
  - Cardiomyopathy [Recovering/Resolving]
  - Eye pain [Unknown]
  - Vision blurred [Unknown]
  - Ocular hyperaemia [Unknown]
  - Nausea [Unknown]
  - Pleural effusion [Recovering/Resolving]
  - Atelectasis [Unknown]
  - Cardiac disorder [Unknown]
  - Stomatitis [Recovering/Resolving]
  - Abdominal distension [Unknown]
  - Pulmonary mass [Recovered/Resolved]
  - Diarrhoea [Recovering/Resolving]
  - Rash [Recovered/Resolved]
  - Atrial fibrillation [Unknown]
  - Central nervous system lesion [Unknown]
  - Cardiac failure congestive [Unknown]
  - Vomiting [Recovered/Resolved]
  - Fatigue [Unknown]
  - Anxiety [Unknown]
  - Cough [Not Recovered/Not Resolved]
  - Alopecia [Recovering/Resolving]
  - Influenza [Unknown]

NARRATIVE: CASE EVENT DATE: 201910
